FAERS Safety Report 20043491 (Version 2)
Quarter: 2021Q4

REPORT INFORMATION
  Report Type: Spontaneous
  Country: US (occurrence: US)
  Receive Date: 20211108
  Receipt Date: 20211223
  Transmission Date: 20220304
  Serious: Yes (Other)
  Sender: FDA-Public Use
  Company Number: US-EyePoint Pharmaceuticals, Inc.-US-EYP-21-00135

PATIENT

DRUGS (1)
  1. DEXYCU [Suspect]
     Active Substance: DEXAMETHASONE
     Indication: Product used for unknown indication
     Route: 031

REACTIONS (6)
  - Corneal toxicity [Unknown]
  - Corneal decompensation [Unknown]
  - Iris disorder [Unknown]
  - Pupillary deformity [Unknown]
  - Iris atrophy [Unknown]
  - Device dislocation [Unknown]
